FAERS Safety Report 7465382-5 (Version None)
Quarter: 2011Q2

REPORT INFORMATION
  Report Type: 
  Country: None (occurrence: None)
  Receive Date: 20110505
  Receipt Date: 20110505
  Transmission Date: 20111010
  Serious: Yes (Hospitalization, Disabling, Other)
  Sender: FDA-Public Use
  Company Number: None

PATIENT
  Sex: Female
  Weight: 79.3795 kg

DRUGS (2)
  1. LUPRON DEPOT [Suspect]
     Indication: MENORRHAGIA
     Dosage: MONTHLY
     Dates: start: 20071115, end: 20080320
  2. LUPRON DEPOT [Suspect]
     Indication: UTERINE LEIOMYOMA
     Dosage: MONTHLY
     Dates: start: 20071115, end: 20080320

REACTIONS (20)
  - HOT FLUSH [None]
  - BLOOD PRESSURE FLUCTUATION [None]
  - CHEST PAIN [None]
  - AMENORRHOEA [None]
  - AXILLARY MASS [None]
  - PAIN IN JAW [None]
  - PAIN [None]
  - DEPRESSION [None]
  - HEADACHE [None]
  - PAIN IN EXTREMITY [None]
  - ABDOMINAL DISCOMFORT [None]
  - WEIGHT INCREASED [None]
  - INSOMNIA [None]
  - LYMPHADENOPATHY [None]
  - DYSPNOEA [None]
  - ANXIETY [None]
  - ABDOMINAL DISTENSION [None]
  - NIGHT SWEATS [None]
  - JOINT CREPITATION [None]
  - RHINORRHOEA [None]
